FAERS Safety Report 5779506-9 (Version None)
Quarter: 2008Q2

REPORT INFORMATION
  Report Type: 
  Country: None (occurrence: None)
  Receive Date: 20080619
  Receipt Date: 20071205
  Transmission Date: 20081010
  Serious: Yes (Other)
  Sender: FDA-Public Use
  Company Number: US-PFIZER INC-2007100094

PATIENT
  Sex: Female
  Weight: 88.636 kg

DRUGS (5)
  1. CELEBREX [Suspect]
     Indication: ARTHRITIS
  2. CELEBREX [Suspect]
     Indication: JOINT SPRAIN
  3. VIOXX [Suspect]
  4. ASPIRIN [Concomitant]
  5. ANTIHYPERTENSIVES [Concomitant]

REACTIONS (6)
  - CARDIOMEGALY [None]
  - DISCOMFORT [None]
  - HYPOAESTHESIA [None]
  - MYOCARDIAL INFARCTION [None]
  - PAIN [None]
  - SUICIDAL IDEATION [None]
